FAERS Safety Report 4324644-0 (Version None)
Quarter: 2004Q1

REPORT INFORMATION
  Report Type: 
  Country: None (occurrence: None)
  Receive Date: 20040322
  Receipt Date: 20040205
  Transmission Date: 20041129
  Serious: Yes (Hospitalization, Other)
  Sender: FDA-Public Use
  Company Number: JP-JNJFOC-20040303538

PATIENT
  Age: 78 Year
  Sex: Female

DRUGS (13)
  1. RISPERDAL [Suspect]
     Indication: SCHIZOPHRENIA
     Dosage: SEE IMAGE
     Route: 048
     Dates: start: 20030801, end: 20030917
  2. RISPERDAL [Suspect]
     Indication: SCHIZOPHRENIA
     Dosage: SEE IMAGE
     Route: 048
     Dates: start: 20030918, end: 20031205
  3. RISPERDAL [Suspect]
     Indication: SCHIZOPHRENIA
     Dosage: SEE IMAGE
     Route: 048
     Dates: start: 20031206
  4. TRIHEXYPHENIDYL HCL [Concomitant]
  5. PANTETHINE (PANTETHINE) [Concomitant]
  6. MAGNESIUM OXIDE (MAGNESIUM OXIDE) [Concomitant]
  7. DIMETICONE (DIMETICONE) [Concomitant]
  8. SUCRALFATE [Concomitant]
  9. DIPYRIDAMOLE [Concomitant]
  10. FLUNITRAZEPAM (FLUNITRAZEPAM) [Concomitant]
  11. FAMOTIIDINE (FAMOTIDINE) [Concomitant]
  12. MOSAPRIDE CITRATE (MOSAPRIDE CITRATE) [Concomitant]
  13. INTRAVENOUS FLUIDS (PARENTERAL) [Concomitant]

REACTIONS (6)
  - DIFFICULTY IN WALKING [None]
  - FALL [None]
  - ILEUS PARALYTIC [None]
  - PUBIC RAMI FRACTURE [None]
  - SEDATION [None]
  - TOXIC DILATATION OF COLON [None]
